FAERS Safety Report 23191927 (Version 1)
Quarter: 2023Q4

REPORT INFORMATION
  Report Type: Spontaneous
  Country: US (occurrence: None)
  Receive Date: 20231116
  Receipt Date: 20231116
  Transmission Date: 20240109
  Serious: Yes (Hospitalization)
  Sender: FDA-Public Use
  Company Number: None

PATIENT
  Age: 51 Year
  Sex: Female

DRUGS (1)
  1. AIMOVIG [Suspect]
     Active Substance: ERENUMAB-AOOE
     Indication: Migraine
     Dosage: 140MG EVERY MONTH UNDER THE SKIN
     Route: 042
     Dates: start: 202305

REACTIONS (2)
  - Migraine with aura [None]
  - Psoriatic arthropathy [None]

NARRATIVE: CASE EVENT DATE: 20231031
